FAERS Safety Report 8521164-4 (Version None)
Quarter: 2012Q3

REPORT INFORMATION
  Report Type: 
  Country: None (occurrence: None)
  Receive Date: 20120719
  Receipt Date: 20120716
  Transmission Date: 20120928
  Serious: Yes (Hospitalization, Other)
  Sender: FDA-Public Use
  Company Number: CO-ELI_LILLY_AND_COMPANY-CO201207005340

PATIENT
  Age: 63 Year
  Sex: Male

DRUGS (6)
  1. OMEPRAZOLE [Concomitant]
  2. TRAMADOL HYDROCHLORIDE [Concomitant]
  3. FORTEO [Suspect]
     Indication: OSTEOPOROSIS
     Dosage: 20 UG, QD
     Dates: start: 20120501
  4. PREDNISOLONE [Concomitant]
  5. CALCITRIOL [Concomitant]
     Dosage: UNK
  6. CHLOROQUINE PHOSPHATE [Concomitant]

REACTIONS (1)
  - SPINAL OPERATION [None]
